FAERS Safety Report 8599167-3 (Version None)
Quarter: 2012Q3

REPORT INFORMATION
  Report Type: 
  Country: None (occurrence: None)
  Receive Date: 20120808
  Receipt Date: 20120808
  Transmission Date: 20120928
  Serious: No
  Sender: FDA-Public Use
  Company Number: None

PATIENT
  Sex: Female

DRUGS (2)
  1. LEXAPRO [Suspect]
     Indication: ANXIETY
     Dosage: 1 1/2 PILLS PER DAY PO
     Route: 048
     Dates: start: 20110901, end: 20120805
  2. LEXAPRO [Suspect]
     Indication: DEPRESSION
     Dosage: 1 1/2 PILLS PER DAY PO
     Route: 048
     Dates: start: 20110901, end: 20120805

REACTIONS (2)
  - GAZE PALSY [None]
  - DYSKINESIA [None]
